FAERS Safety Report 7892467-1 (Version None)
Quarter: 2011Q4

REPORT INFORMATION
  Report Type: 
  Country: None (occurrence: None)
  Receive Date: 20111104
  Receipt Date: 20111026
  Transmission Date: 20120403
  Serious: Yes (Other)
  Sender: FDA-Public Use
  Company Number: US-JNJFOC-20090904539

PATIENT
  Sex: Female

DRUGS (16)
  1. LOVASTATIN [Concomitant]
     Dates: start: 20080729
  2. ACETAMINOPHEN W/ CODEINE [Concomitant]
     Dosage: 300-30 MG, 1-2 PRN
     Dates: start: 20080310
  3. PREDNISONE [Concomitant]
     Dates: start: 20051115
  4. CARISOPRODOL [Concomitant]
     Dates: start: 20060501
  5. BACTRIM [Concomitant]
     Dosage: 400-80 MG - M, W, F
  6. LIDODERM [Concomitant]
     Dosage: 5% PTCH
  7. PREDNISONE [Concomitant]
     Dates: end: 20090521
  8. METHOTREXATE [Concomitant]
     Route: 048
     Dates: start: 19981115, end: 20090511
  9. CELEBREX [Concomitant]
     Dates: start: 19971115
  10. FOLIC ACID [Concomitant]
  11. TRIAMTERENE AND HYDROCHLOROTHIAZIDE [Concomitant]
     Dosage: 37.5-25 MG
  12. INFLIXIMAB [Suspect]
     Indication: RHEUMATOID ARTHRITIS
     Route: 042
     Dates: start: 20090303, end: 20090414
  13. WARFARIN SODIUM [Concomitant]
  14. FOSAMAX [Concomitant]
  15. ATROVENT [Concomitant]
     Dosage: 18 MCG/ACT
     Route: 055
  16. OXYCODONE HCL [Concomitant]
     Dosage: 5-10 MG

REACTIONS (2)
  - ASPERGILLOSIS [None]
  - INTERSTITIAL LUNG DISEASE [None]
